FAERS Safety Report 7096287-X (Version None)
Quarter: 2010Q4

REPORT INFORMATION
  Report Type: 
  Country: None (occurrence: None)
  Receive Date: 20101111
  Receipt Date: 20101110
  Transmission Date: 20110411
  Serious: Yes (Hospitalization)
  Sender: FDA-Public Use
  Company Number: IT-BRISTOL-MYERS SQUIBB COMPANY-15017858

PATIENT
  Age: 70 Year
  Sex: Female
  Weight: 62 kg

DRUGS (3)
  1. CETUXIMAB [Suspect]
     Indication: NON-SMALL CELL LUNG CANCER
     Dosage: RECENT INF:23FEB10 TEMP DIS ON 2MAR10 AND RESTARTED ON 16MAR10
     Route: 042
     Dates: start: 20100112
  2. CISPLATIN [Suspect]
     Indication: NON-SMALL CELL LUNG CANCER
     Dosage: RECENT INF:23FEB10 TEMP DIS ON 2MAR10 ON DAY 1 OF 21 CYC
     Route: 042
     Dates: start: 20100112, end: 20100302
  3. GEMCITABINE [Suspect]
     Indication: NON-SMALL CELL LUNG CANCER
     Dosage: RECENT INF:23FEB10 TEMP DIS ON 2MAR10 ON DAY 1,8 OF 21 DAY CYCLE
     Route: 042
     Dates: start: 20100112, end: 20100302

REACTIONS (1)
  - TACHYCARDIA [None]
